FAERS Safety Report 5584319-7 (Version None)
Quarter: 2008Q1

REPORT INFORMATION
  Report Type: 
  Country: None (occurrence: None)
  Receive Date: 20080108
  Receipt Date: 20080103
  Transmission Date: 20080703
  Serious: Yes (Hospitalization)
  Sender: FDA-Public Use
  Company Number: FR-ASTRAZENECA-2008CG00012

PATIENT
  Age: 783 Month
  Sex: Male

DRUGS (6)
  1. TENORMIN [Suspect]
     Route: 048
     Dates: end: 20070601
  2. CORDARONE [Suspect]
     Route: 048
     Dates: end: 20070601
  3. TEMERIT [Concomitant]
     Route: 048
  4. FONZYLANE [Concomitant]
     Route: 048
  5. ALPRESS LP [Concomitant]
     Route: 048
  6. KALEORID LP [Concomitant]
     Route: 048

REACTIONS (1)
  - PHOTOSENSITIVITY ALLERGIC REACTION [None]
